FAERS Safety Report 21471881 (Version 1)
Quarter: 2022Q4

REPORT INFORMATION
  Report Type: Spontaneous
  Country: US (occurrence: US)
  Receive Date: 20221018
  Receipt Date: 20221018
  Transmission Date: 20230113
  Serious: Yes (Hospitalization, Other)
  Sender: FDA-Public Use
  Company Number: US-JNJFOC-20221023437

PATIENT
  Age: 54 Year
  Sex: Female
  Weight: 62.198 kg

DRUGS (4)
  1. OPSUMIT [Suspect]
     Active Substance: MACITENTAN
     Indication: Product used for unknown indication
     Route: 048
     Dates: start: 2022
  2. REMODULIN [Suspect]
     Active Substance: TREPROSTINIL
     Indication: Pulmonary arterial hypertension
     Dosage: PRE-FILLED WITH 3  ML PER CASSETTE AT A RATE OF 31 MCL/HOUR
     Route: 042
     Dates: start: 20220808
  3. REMODULIN [Suspect]
     Active Substance: TREPROSTINIL
     Dosage: PRE-FILLED WITH 3  ML PER CASSETTE AT A RATE OF 35 MCL/HOUR
     Route: 042
     Dates: start: 2022
  4. REMODULIN [Suspect]
     Active Substance: TREPROSTINIL
     Dosage: PRE-FILLED WITH 1.8 ML PER CASSETTE; PUMP RATE OF 16 MCL PER HOUR
     Route: 042
     Dates: start: 2022

REACTIONS (8)
  - Blood potassium decreased [Unknown]
  - Blood magnesium decreased [Unknown]
  - Heart rate increased [Not Recovered/Not Resolved]
  - Dyspnoea [Unknown]
  - Palpitations [Unknown]
  - Oxygen saturation decreased [Unknown]
  - Stress [Unknown]
  - Weight fluctuation [Unknown]

NARRATIVE: CASE EVENT DATE: 20220101
